FAERS Safety Report 14713522 (Version 1)
Quarter: 2018Q1

REPORT INFORMATION
  Report Type: Spontaneous
  Country: US (occurrence: US)
  Receive Date: 20180330
  Receipt Date: 20180330
  Transmission Date: 20180509
  Serious: No
  Sender: FDA-Public Use
  Company Number: None

PATIENT
  Sex: Female

DRUGS (1)
  1. REMICADE [Suspect]
     Active Substance: INFLIXIMAB
     Indication: CROHN^S DISEASE
     Dosage: 300MG EVERY 8 WEEKS IV
     Route: 042
     Dates: start: 20180306

REACTIONS (3)
  - Eczema [None]
  - Acne [None]
  - Skin exfoliation [None]
